FAERS Safety Report 8761128 (Version 1)
Quarter: 2012Q4

REPORT INFORMATION
  Report Type: 
  Country: GR (occurrence: GR)
  Receive Date: 20120830
  Receipt Date: 20120830
  Transmission Date: 20130627
  Serious: Yes (Other)
  Sender: FDA-Public Use
  Company Number: GR-TEVA-354979ISR

PATIENT
  Age: 64 Year
  Sex: Male

DRUGS (3)
  1. PACLITAXEL [Suspect]
     Indication: NON-SMALL CELL LUNG CANCER METASTATIC
     Dosage: 175 mg/m2 every 3wks; polyethylated castor oil-based
     Route: 041
  2. CARBOPLATIN [Concomitant]
     Indication: NON-SMALL CELL LUNG CANCER METASTATIC
     Dosage: dosed at an area under the curve of 6.0
     Route: 065
  3. BEVACIZUMAB [Concomitant]
     Indication: NON-SMALL CELL LUNG CANCER METASTATIC
     Dosage: 15 mg/kg Daily; 15 mg/kg
     Route: 042

REACTIONS (1)
  - Cystoid macular oedema [Recovered/Resolved with Sequelae]
